FAERS Safety Report 7626129-2 (Version None)
Quarter: 2011Q3

REPORT INFORMATION
  Report Type: 
  Country: None (occurrence: None)
  Receive Date: 20110721
  Receipt Date: 20110715
  Transmission Date: 20111222
  Serious: Yes (Other)
  Sender: FDA-Public Use
  Company Number: CN-PFIZER INC-2011160291

PATIENT
  Age: 35 Year
  Sex: Male

DRUGS (1)
  1. AZITHROMYCIN [Suspect]
     Dosage: 0.5 G, 1X/DAY
     Route: 041
     Dates: start: 20060101, end: 20060101

REACTIONS (1)
  - HAEMOLYSIS [None]
